FAERS Safety Report 8697397 (Version 2)
Quarter: 2013Q4

REPORT INFORMATION
  Report Type: Spontaneous
  Country: DE (occurrence: DE)
  Receive Date: 20120801
  Receipt Date: 20131106
  Transmission Date: 20140711
  Serious: Yes (Life-Threatening, Hospitalization)
  Sender: FDA-Public Use
  Company Number: DE-009507513-97105570

PATIENT
  Age: 73 Year
  Sex: Female
  Weight: 68 kg

DRUGS (5)
  1. MK-0954 [Suspect]
     Indication: HYPERTENSION
     Dosage: 100 MG, BID
     Route: 048
     Dates: start: 199703, end: 199708
  2. ISOSORBIDE DINITRATE [Concomitant]
     Dosage: 40 MG, UNK
  3. DIGITOXIN [Concomitant]
  4. ASPIRIN [Concomitant]
     Dosage: 100 MG, UNK
  5. INSULIN [Concomitant]

REACTIONS (1)
  - Hepatitis cholestatic [Recovered/Resolved]
